FAERS Safety Report 10420853 (Version 2)
Quarter: 2014Q4

REPORT INFORMATION
  Report Type: Spontaneous
  Country: US (occurrence: None)
  Receive Date: 20140714
  Receipt Date: 20141015
  Transmission Date: 20150528
  Serious: Yes (Other)
  Sender: FDA-Public Use
  Company Number: 2014US003261

PATIENT
  Age: 64 Year
  Sex: Male

DRUGS (1)
  1. ICLUSIG [Suspect]
     Active Substance: PONATINIB
     Indication: CHRONIC MYELOID LEUKAEMIA
     Route: 048
     Dates: start: 20140418

REACTIONS (6)
  - Constipation [None]
  - Abdominal distension [None]
  - Abdominal pain upper [None]
  - Chest discomfort [None]
  - Red blood cell count decreased [None]
  - Blast cell crisis [None]
